FAERS Safety Report 22137320 (Version 2)
Quarter: 2023Q1

REPORT INFORMATION
  Report Type: Report from Study
  Country: BR (occurrence: BR)
  Receive Date: 20230325
  Receipt Date: 20230328
  Transmission Date: 20230418
  Serious: Yes (Other)
  Sender: FDA-Public Use
  Company Number: BR-ABBVIE-4699319

PATIENT
  Sex: Female
  Weight: 56 kg

DRUGS (3)
  1. RINVOQ [Suspect]
     Active Substance: UPADACITINIB
     Indication: Rheumatoid arthritis
     Dosage: FORM STRENGTH: 15 MILLIGRAM
     Route: 048
     Dates: end: 202212
  2. LOSARTAN [Concomitant]
     Active Substance: LOSARTAN
     Indication: Hypertension
     Dosage: 1 TABLET??FORM STRENGTH: 50 MILLIGRAMS
     Route: 048
  3. ALDACTONE [Concomitant]
     Active Substance: SPIRONOLACTONE
     Indication: Hypertension
     Dosage: 1 TABLET??FORM STRENGTH: 25 MILLIGRAM
     Route: 048

REACTIONS (5)
  - Gingival graft [Unknown]
  - Pain [Recovering/Resolving]
  - Rheumatoid arthritis [Recovering/Resolving]
  - Endodontic procedure [Unknown]
  - Visual impairment [Unknown]

NARRATIVE: CASE EVENT DATE: 20221201
